FAERS Safety Report 24654601 (Version 1)
Quarter: 2024Q4

REPORT INFORMATION
  Report Type: Spontaneous
  Country: US (occurrence: US)
  Receive Date: 20241122
  Receipt Date: 20241122
  Transmission Date: 20250114
  Serious: Yes (Hospitalization)
  Sender: RIGEL PHARMACEUTICALS
  Company Number: US-RIGEL Pharmaceuticals, INC-20241100087

PATIENT
  Sex: Male

DRUGS (1)
  1. TAVALISSE [Suspect]
     Active Substance: FOSTAMATINIB
     Indication: Thrombocytopenia
     Dosage: 100 MG, BID
     Route: 048
     Dates: start: 20241024

REACTIONS (6)
  - Platelet count decreased [Recovered/Resolved]
  - Headache [Unknown]
  - Balance disorder [Unknown]
  - Muscular weakness [Unknown]
  - Blood pressure increased [Unknown]
  - Dizziness [Unknown]

NARRATIVE: CASE EVENT DATE: 20240101
